FAERS Safety Report 5891600-0 (Version None)
Quarter: 2008Q3

REPORT INFORMATION
  Report Type: 
  Country: None (occurrence: None)
  Receive Date: 20080908
  Receipt Date: 20080610
  Transmission Date: 20090109
  Serious: No
  Sender: FDA-Public Use
  Company Number: 002#2#2008-00541

PATIENT
  Age: 79 Year
  Sex: Male
  Weight: 81.6475 kg

DRUGS (5)
  1. NEUPRO [Suspect]
     Indication: PARKINSON'S DISEASE
     Dosage: 4MG/24H, 1 IN 1, TRANSDERMAL
     Route: 062
     Dates: start: 20071101, end: 20080401
  2. MIRAPEX [Suspect]
     Indication: PARKINSON'S DISEASE
     Dates: start: 20080401
  3. SEROQUEL [Concomitant]
  4. UNSPECIFIED MEDICATION FOR GO [Concomitant]
  5. UNSPECIFIED MEDICATION FOR HYPERTENSION [Concomitant]

REACTIONS (1)
  - HALLUCINATION [None]
